FAERS Safety Report 4579566-7 (Version None)
Quarter: 2005Q1

REPORT INFORMATION
  Report Type: 
  Country: None (occurrence: None)
  Receive Date: 20050214
  Receipt Date: 20050201
  Transmission Date: 20050727
  Serious: Yes (Disabling)
  Sender: FDA-Public Use
  Company Number: US-JNJFOC-20041101479

PATIENT
  Sex: Female
  Weight: 53.52 kg

DRUGS (4)
  1. REMICADE [Suspect]
     Route: 042
  2. REMICADE [Suspect]
     Indication: RHEUMATOID ARTHRITIS
     Route: 042
  3. THALOMID [Suspect]
     Indication: RHEUMATOID ARTHRITIS
  4. THALOMID [Suspect]

REACTIONS (2)
  - DRUG INTERACTION [None]
  - PERIPHERAL SENSORY NEUROPATHY [None]
